FAERS Safety Report 22306572 (Version 2)
Quarter: 2024Q2

REPORT INFORMATION
  Report Type: Spontaneous
  Country: US (occurrence: US)
  Receive Date: 20230511
  Receipt Date: 20240403
  Transmission Date: 20240716
  Serious: No
  Sender: FDA-Public Use
  Company Number: US-ABBVIE-4760201

PATIENT
  Sex: Female

DRUGS (1)
  1. RINVOQ [Suspect]
     Active Substance: UPADACITINIB
     Indication: Rheumatoid arthritis
     Route: 048

REACTIONS (3)
  - Joint effusion [Unknown]
  - Gait disturbance [Unknown]
  - Arthralgia [Unknown]
